FAERS Safety Report 14123297 (Version 1)
Quarter: 2017Q4

REPORT INFORMATION
  Report Type: Spontaneous
  Country: US (occurrence: US)
  Receive Date: 20171025
  Receipt Date: 20171025
  Transmission Date: 20180321
  Serious: Yes (Other)
  Sender: FDA-Public Use
  Company Number: None

PATIENT
  Age: 55 Year
  Sex: Female
  Weight: 90 kg

DRUGS (3)
  1. MAGNESIUM [Concomitant]
     Active Substance: MAGNESIUM
  2. POTASSIUM [Concomitant]
     Active Substance: POTASSIUM
  3. FRUIT SMOOTHIES [Suspect]
     Active Substance: DIMETHICONE\OCTINOXATE\OXYBENZONE
     Indication: CHAPPED LIPS
     Route: 061
     Dates: start: 20171024, end: 20171024

REACTIONS (5)
  - Lip swelling [None]
  - Similar reaction on previous exposure to drug [None]
  - Oral discomfort [None]
  - Lip blister [None]
  - Lip pain [None]

NARRATIVE: CASE EVENT DATE: 20171024
